FAERS Safety Report 5747574-6 (Version None)
Quarter: 2008Q2

REPORT INFORMATION
  Report Type: 
  Country: None (occurrence: None)
  Receive Date: 20080523
  Receipt Date: 20080515
  Transmission Date: 20081010
  Serious: Yes (Other)
  Sender: FDA-Public Use
  Company Number: FR-AVENTIS-200811788FR

PATIENT
  Age: 80 Year
  Sex: Male

DRUGS (10)
  1. LASILIX                            /00032601/ [Suspect]
     Indication: DRUG USE FOR UNKNOWN INDICATION
     Route: 042
     Dates: start: 20080215, end: 20080215
  2. FUROSEMIDE BIOGARAN [Suspect]
     Indication: DRUG USE FOR UNKNOWN INDICATION
     Route: 048
     Dates: end: 20080210
  3. FUROSEMIDE BIOGARAN [Suspect]
     Route: 048
     Dates: start: 20080211, end: 20080213
  4. VALSARTAN AND HYDROCHLOROTHIAZIDE [Suspect]
     Dosage: DOSE: 80/12.5
     Route: 048
     Dates: end: 20080217
  5. RISORDAN [Concomitant]
     Indication: CHEST PAIN
     Route: 042
     Dates: start: 20080213, end: 20080215
  6. PLAVIX [Concomitant]
     Indication: DRUG USE FOR UNKNOWN INDICATION
     Route: 048
     Dates: start: 20080213
  7. KARDEGIC                           /00002703/ [Concomitant]
     Indication: DRUG USE FOR UNKNOWN INDICATION
     Route: 048
  8. CARVEDILOL [Concomitant]
     Route: 048
  9. ZOCOR [Concomitant]
     Route: 048
  10. GLUCOPHAGE [Concomitant]
     Indication: TYPE 2 DIABETES MELLITUS
     Route: 048

REACTIONS (3)
  - CONDITION AGGRAVATED [None]
  - DRUG INTERACTION [None]
  - HYPONATRAEMIA [None]
